FAERS Safety Report 5733626-3 (Version None)
Quarter: 2008Q2

REPORT INFORMATION
  Report Type: 
  Country: None (occurrence: None)
  Receive Date: 20080509
  Receipt Date: 20080428
  Transmission Date: 20081010
  Serious: Yes (Hospitalization, Other)
  Sender: FDA-Public Use
  Company Number: FR-PFIZER INC-2008000280

PATIENT
  Sex: Female
  Weight: 53 kg

DRUGS (2)
  1. CHANTIX [Suspect]
     Indication: SMOKING CESSATION THERAPY
     Dosage: DAILY DOSE:2MG
     Route: 048
     Dates: start: 20071201, end: 20071213
  2. DESOGESTREL AND ETHINYL ESTRADIOL [Concomitant]
     Indication: CONTRACEPTION
     Route: 048
     Dates: start: 20071203, end: 20071228

REACTIONS (10)
  - DRUG INTOLERANCE [None]
  - DYSAESTHESIA [None]
  - EYE PAIN [None]
  - FACIAL PALSY [None]
  - HAEMOPTYSIS [None]
  - HEMIPARESIS [None]
  - INFECTION [None]
  - LABORATORY TEST ABNORMAL [None]
  - MIGRAINE [None]
  - PHOTOPHOBIA [None]
